FAERS Safety Report 16755742 (Version 2)
Quarter: 2019Q4

REPORT INFORMATION
  Report Type: Spontaneous
  Country: PL (occurrence: PL)
  Receive Date: 20190829
  Receipt Date: 20191011
  Transmission Date: 20200122
  Serious: Yes (Other)
  Sender: FDA-Public Use
  Company Number: PL-PFIZER INC-2019366655

PATIENT
  Age: 62 Year
  Sex: Female

DRUGS (6)
  1. HERCEPTIN [Suspect]
     Active Substance: TRASTUZUMAB
     Dosage: UNK, SOLUTION FOR INJECTION
     Route: 058
     Dates: start: 20190902
  2. PERJETA [Suspect]
     Active Substance: PERTUZUMAB
     Indication: BREAST CANCER METASTATIC
     Dosage: 420 MG, EVERY 3 WEEKS, SOLUTION FOR INFUSION
     Route: 042
  3. PERJETA [Suspect]
     Active Substance: PERTUZUMAB
     Dosage: UNK SOLUTION FOR INFUSION
     Route: 042
     Dates: start: 20190902
  4. PERJETA [Suspect]
     Active Substance: PERTUZUMAB
     Dosage: 840 MG, SINGLE (ONCE), SOLUTION FOR INFUSION
     Route: 042
     Dates: start: 20181105
  5. HERCEPTIN [Suspect]
     Active Substance: TRASTUZUMAB
     Indication: BREAST CANCER METASTATIC
     Dosage: 600 MG, EVERY 3 WEEKS, SOLUTION FOR INJECTION
     Route: 058
     Dates: start: 20181105
  6. DOCETAXEL. [Suspect]
     Active Substance: DOCETAXEL
     Indication: BREAST CANCER METASTATIC
     Dosage: 75 MG, EVERY 3 WEEKS
     Route: 065
     Dates: start: 20181105

REACTIONS (1)
  - Cardiotoxicity [Unknown]

NARRATIVE: CASE EVENT DATE: 20190701
